FAERS Safety Report 14873822 (Version 1)
Quarter: 2018Q2

REPORT INFORMATION
  Report Type: Spontaneous
  Country: US (occurrence: US)
  Receive Date: 20180424
  Receipt Date: 20180424
  Transmission Date: 20180711
  Serious: Yes (Other)
  Sender: FDA-Public Use
  Company Number: None

PATIENT
  Age: 50 Year
  Sex: Female
  Weight: 103.5 kg

DRUGS (4)
  1. ALLEGRA [Concomitant]
     Active Substance: FEXOFENADINE HYDROCHLORIDE
  2. METHYLPHENIDATE 18ER YELLOW ROUND SHAPED TABLET IMPRINTED W/TL 706 [Suspect]
     Active Substance: METHYLPHENIDATE
     Indication: ATTENTION DEFICIT/HYPERACTIVITY DISORDER
     Dosage: ?          QUANTITY:1 TABLET(S);?
     Route: 048
     Dates: start: 20180302, end: 20180303
  3. OMEPRAZOLE. [Concomitant]
     Active Substance: OMEPRAZOLE
  4. DIVIGEL [Concomitant]
     Active Substance: ESTRADIOL

REACTIONS (5)
  - Tinnitus [None]
  - Suicidal ideation [None]
  - Agitation [None]
  - Intentional self-injury [None]
  - Headache [None]

NARRATIVE: CASE EVENT DATE: 20180302
